FAERS Safety Report 8943755 (Version 2)
Quarter: 2012Q4

REPORT INFORMATION
  Report Type: 
  Country: BR (occurrence: BR)
  Receive Date: 20121203
  Receipt Date: 20121221
  Transmission Date: 20130627
  Serious: Yes (Death, Hospitalization)
  Sender: FDA-Public Use
  Company Number: BR-GLAXOSMITHKLINE-A1003752A

PATIENT
  Sex: Female
  Weight: 43 kg

DRUGS (4)
  1. TYKERB [Suspect]
     Indication: BREAST CANCER
     Dosage: 1250MG Per day
     Route: 048
  2. PAMIDRONATE [Suspect]
     Indication: PRODUCT USED FOR UNKNOWN INDICATION
     Dosage: 90MG Cyclic
     Dates: start: 20121023
  3. ENALAPRIL [Concomitant]
     Dosage: 10MG Twice per day
  4. NEUTROFER [Concomitant]

REACTIONS (2)
  - Death [Fatal]
  - Hyponatraemia [Fatal]
